FAERS Safety Report 6458510-1 (Version None)
Quarter: 2009Q4

REPORT INFORMATION
  Report Type: 
  Country: None (occurrence: None)
  Receive Date: 20091126
  Receipt Date: 20091120
  Transmission Date: 20100525
  Serious: Yes (Hospitalization)
  Sender: FDA-Public Use
  Company Number: US-BIOGENIDEC-2009BI033022

PATIENT
  Age: 62 Year
  Sex: Female

DRUGS (1)
  1. AVONEX [Suspect]
     Indication: MULTIPLE SCLEROSIS
     Route: 030
     Dates: start: 19960801, end: 20090901

REACTIONS (10)
  - ANKLE FRACTURE [None]
  - ARTHRALGIA [None]
  - ASTHENIA [None]
  - CATARACT [None]
  - FALL [None]
  - GASTRIC ULCER HAEMORRHAGE [None]
  - HIP FRACTURE [None]
  - OSTEOPOROSIS [None]
  - TEMPOROMANDIBULAR JOINT SYNDROME [None]
  - WRIST FRACTURE [None]
